FAERS Safety Report 6093788-8 (Version None)
Quarter: 2009Q1

REPORT INFORMATION
  Report Type: 
  Country: None (occurrence: None)
  Receive Date: 20090223
  Receipt Date: 20090120
  Transmission Date: 20090719
  Serious: Yes (Disabling)
  Sender: FDA-Public Use
  Company Number: 000239

PATIENT
  Age: 45 Year
  Sex: Female

DRUGS (5)
  1. PARACETAMOL WITH CODEINE PHOSPHATE (PARACETAMOL WITH CODEINE) [Suspect]
     Indication: BACK PAIN
     Dosage: SEE IMAGE
     Route: 048
  2. OXYCODONE [Concomitant]
  3. AMINOSALICYLIC ACID [Concomitant]
  4. SERTRALINE [Concomitant]
  5. AMITRIPTYLINE [Concomitant]

REACTIONS (3)
  - DEAFNESS [None]
  - DRUG ABUSER [None]
  - DRUG INTERACTION [None]
